FAERS Safety Report 24729334 (Version 1)
Quarter: 2024Q4

REPORT INFORMATION
  Report Type: Spontaneous
  Country: IN (occurrence: IN)
  Receive Date: 20241213
  Receipt Date: 20241213
  Transmission Date: 20250115
  Serious: Yes (Other)
  Sender: MSN LABORATORIES PRIVATE LIMITED
  Company Number: IN-MSNLABS-2024MSNLIT02660

PATIENT

DRUGS (1)
  1. DEFERASIROX [Suspect]
     Active Substance: DEFERASIROX
     Indication: Serum ferritin increased
     Route: 065

REACTIONS (2)
  - Hepatic encephalopathy [Recovered/Resolved]
  - Drug-induced liver injury [Recovered/Resolved]
